FAERS Safety Report 10858915 (Version 1)
Quarter: 2015Q1

REPORT INFORMATION
  Report Type: Spontaneous
  Country: US (occurrence: US)
  Receive Date: 20150223
  Receipt Date: 20150223
  Transmission Date: 20150721
  Serious: No
  Sender: FDA-Public Use
  Company Number: US-TEVA-541939USA

PATIENT
  Age: 56 Year
  Sex: Male

DRUGS (1)
  1. COPAXONE [Suspect]
     Active Substance: GLATIRAMER ACETATE

REACTIONS (5)
  - Yawning [Unknown]
  - Therapy change [Unknown]
  - Muscle tightness [Unknown]
  - Tremor [Unknown]
  - Chills [Unknown]
